FAERS Safety Report 8608782 (Version 5)
Quarter: 2012Q4

REPORT INFORMATION
  Report Type: 
  Country: FI (occurrence: FI)
  Receive Date: 20120611
  Receipt Date: 20121116
  Transmission Date: 20130627
  Serious: Yes (Death, Hospitalization, Disabling)
  Sender: FDA-Public Use
  Company Number: FI-INCYTE CORPORATION-2012IN000977

PATIENT
  Sex: Female
  Weight: 71 kg

DRUGS (13)
  1. INC424 [Suspect]
     Indication: MYELOFIBROSIS
     Dosage: 20 mg, bid
     Route: 048
     Dates: start: 20111212, end: 20120116
  2. INC424 [Suspect]
     Dosage: 25 mg, bid
     Route: 048
     Dates: start: 20120116, end: 20120613
  3. PREDNISOLONE [Concomitant]
     Dosage: UNK
     Dates: start: 20090223, end: 20111211
  4. OMEPRAZOL [Concomitant]
  5. CALCICHEW-D3 [Concomitant]
  6. KALEORID [Concomitant]
  7. PRIMASPAN [Concomitant]
  8. SPESICOR DOS [Concomitant]
  9. NEURONTIN [Concomitant]
  10. TRIPTYL [Concomitant]
  11. NEORECORMON [Concomitant]
  12. PARATABS [Concomitant]
  13. FELODIPINE [Concomitant]

REACTIONS (2)
  - Visual impairment [Unknown]
  - Listeria sepsis [Fatal]
